FAERS Safety Report 7731707-6 (Version None)
Quarter: 2011Q3

REPORT INFORMATION
  Report Type: 
  Country: None (occurrence: None)
  Receive Date: 20110906
  Receipt Date: 20110217
  Transmission Date: 20111222
  Serious: No
  Sender: FDA-Public Use
  Company Number: US-BAYER-2011-019755

PATIENT
  Age: 16 Year
  Sex: Female

DRUGS (1)
  1. ULTRAVIST 150 [Suspect]
     Indication: COMPUTERISED TOMOGRAM
     Dosage: 125 ML, UNK
     Dates: start: 20110217

REACTIONS (5)
  - LIP DISORDER [None]
  - ERYTHEMA [None]
  - COUGH [None]
  - THROAT IRRITATION [None]
  - NAUSEA [None]
